FAERS Safety Report 8404159-0 (Version None)
Quarter: 2012Q2

REPORT INFORMATION
  Report Type: 
  Country: None (occurrence: None)
  Receive Date: 20120601
  Receipt Date: 20120530
  Transmission Date: 20120825
  Serious: Yes (Hospitalization)
  Sender: FDA-Public Use
  Company Number: US-PFIZER INC-2012090678

PATIENT
  Sex: Female

DRUGS (2)
  1. RELPAX [Suspect]
     Dosage: UNK
     Route: 048
     Dates: start: 20120227, end: 20120227
  2. RELPAX [Suspect]
     Indication: MIGRAINE
     Dosage: 40MG, UNK
     Route: 048
     Dates: start: 20120227, end: 20120227

REACTIONS (6)
  - CHOKING [None]
  - OROPHARYNGEAL PAIN [None]
  - FATIGUE [None]
  - PAIN IN EXTREMITY [None]
  - THROAT TIGHTNESS [None]
  - DIZZINESS [None]
